FAERS Safety Report 10982760 (Version 1)
Quarter: 2015Q2

REPORT INFORMATION
  Report Type: Spontaneous
  Country: AR (occurrence: AR)
  Receive Date: 20150403
  Receipt Date: 20150403
  Transmission Date: 20150821
  Serious: Yes (Other)
  Sender: FDA-Public Use
  Company Number: AR-JNJFOC-20150321817

PATIENT
  Sex: Female
  Weight: 88 kg

DRUGS (1)
  1. SIMPONI [Suspect]
     Active Substance: GOLIMUMAB
     Indication: RHEUMATOID ARTHRITIS
     Route: 058
     Dates: start: 20150304

REACTIONS (5)
  - Pain [Unknown]
  - Weight increased [Unknown]
  - Back pain [Unknown]
  - Arthralgia [Unknown]
  - Inflammation [Recovered/Resolved]
